FAERS Safety Report 16175894 (Version 2)
Quarter: 2019Q2

REPORT INFORMATION
  Report Type: Spontaneous
  Country: CZ (occurrence: CZ)
  Receive Date: 20190409
  Receipt Date: 20190419
  Transmission Date: 20190711
  Serious: Yes (Other)
  Sender: FDA-Public Use
  Company Number: CZ-GLAXOSMITHKLINE-CZ2019062760

PATIENT
  Age: 66 Year
  Sex: Male
  Weight: 90 kg

DRUGS (1)
  1. DICLOFENAC [Suspect]
     Active Substance: DICLOFENAC
     Indication: SPINAL PAIN
     Dosage: 2 DF, UNK
     Route: 065

REACTIONS (4)
  - Therapeutic response decreased [Unknown]
  - Haematemesis [Unknown]
  - Abdominal pain upper [Unknown]
  - Gastrointestinal haemorrhage [Unknown]
